FAERS Safety Report 7249220-1 (Version None)
Quarter: 2011Q1

REPORT INFORMATION
  Report Type: 
  Country: None (occurrence: None)
  Receive Date: 20110128
  Receipt Date: 20101122
  Transmission Date: 20110831
  Serious: Yes (Hospitalization)
  Sender: FDA-Public Use
  Company Number: US-BAYER-201032848NA

PATIENT
  Sex: Female
  Weight: 104.31 kg

DRUGS (13)
  1. ALEVE [Concomitant]
  2. PHENTERMINE [Concomitant]
     Dosage: 37.5 MG, UNK
     Route: 048
  3. PREDNISONE [Concomitant]
     Dosage: 10 MG, TAPERED DOSES
     Dates: start: 20100115
  4. YASMIN [Suspect]
     Indication: CONTRACEPTION
     Route: 048
     Dates: start: 20051228, end: 20100505
  5. METRONIDAZOLE [Concomitant]
     Dosage: 500 MG, BID
     Route: 048
     Dates: start: 20100108
  6. ETODOLAC [Concomitant]
     Dosage: UNK
     Dates: start: 20080101
  7. IBUPROFEN AL [Concomitant]
  8. CIPROFLOXACIN [Concomitant]
     Dosage: 500 MG, QD
     Route: 048
     Dates: start: 20100108
  9. YASMIN [Suspect]
     Indication: PREMENSTRUAL SYNDROME
  10. MOTRIN [Concomitant]
  11. ASACOL [Concomitant]
     Dosage: 800 MG, TID
     Route: 048
     Dates: start: 20100115
  12. OCELLA [Suspect]
     Indication: CONTRACEPTION
     Dosage: 3MG, 0.03MG
     Route: 048
     Dates: start: 20090101, end: 20091101
  13. OCELLA [Suspect]
     Indication: PREMENSTRUAL SYNDROME

REACTIONS (5)
  - CHOLECYSTITIS CHRONIC [None]
  - NAUSEA [None]
  - BILIARY DYSKINESIA [None]
  - DIARRHOEA [None]
  - ABDOMINAL PAIN UPPER [None]
